FAERS Safety Report 13400986 (Version 2)
Quarter: 2017Q2

REPORT INFORMATION
  Report Type: Spontaneous
  Country: DE (occurrence: DE)
  Receive Date: 20170404
  Receipt Date: 20170518
  Transmission Date: 20170830
  Serious: Yes (Hospitalization, Other)
  Sender: FDA-Public Use
  Company Number: DE-GLAXOSMITHKLINE-DE2017GSK046333

PATIENT
  Sex: Female

DRUGS (2)
  1. VOLTAREN [Suspect]
     Active Substance: DICLOFENAC SODIUM
     Dosage: 3 DF, QD (TWO TO THREE TIMES DAILY)
     Dates: start: 20170316, end: 20170320
  2. VOLTAREN [Suspect]
     Active Substance: DICLOFENAC SODIUM
     Indication: SCIATIC NERVE INJURY
     Dosage: 46.5 MG, UNK (SPORADICALLY)

REACTIONS (4)
  - Rash [Unknown]
  - Blister [Unknown]
  - Erythema [Unknown]
  - Herpes zoster [Unknown]

NARRATIVE: CASE EVENT DATE: 20170320
